FAERS Safety Report 18409388 (Version 1)
Quarter: 2020Q4

REPORT INFORMATION
  Report Type: Report from Study
  Country: ES (occurrence: ES)
  Receive Date: 20201021
  Receipt Date: 20201021
  Transmission Date: 20210114
  Serious: Yes (Life-Threatening, Hospitalization)
  Sender: FDA-Public Use
  Company Number: ES-TEVA-2020-ES-1839554

PATIENT
  Age: 70 Year
  Sex: Male

DRUGS (6)
  1. PARACETAMOL (12A) [Concomitant]
     Active Substance: ACETAMINOPHEN
     Indication: PAIN
     Dosage: 1 GRAM
     Route: 048
     Dates: start: 20180410
  2. ENZALUTAMIDA (8600A) [Interacting]
     Active Substance: ENZALUTAMIDE
     Indication: PROSTATE CANCER METASTATIC
     Dosage: 160MG
     Route: 048
     Dates: start: 20191119, end: 20191125
  3. ACETILSALICILICO ACIDO (176A) [Interacting]
     Active Substance: ASPIRIN
     Indication: VASCULAR DISORDER PROPHYLAXIS
     Dosage: 100MG
     Route: 048
     Dates: start: 20161023, end: 20191125
  4. CANDESARTAN + HIDROCLOROTIAZIDA [Concomitant]
     Active Substance: CANDESARTAN CILEXETIL\HYDROCHLOROTHIAZIDE
     Indication: HYPERTENSION
     Dosage: 1 DOSAGE FORMS
     Route: 048
     Dates: end: 20191125
  5. IBUPROFENO (1769A) [Suspect]
     Active Substance: IBUPROFEN
     Indication: PAIN
     Dosage: 600MG
     Route: 048
     Dates: start: 201910, end: 20191125
  6. FAMOTIDINA (2100A) [Concomitant]
     Indication: GASTRIC ULCER
     Dosage: 20MG
     Route: 048
     Dates: end: 20191125

REACTIONS (3)
  - Drug interaction [Unknown]
  - Thrombocytopenia [Recovered/Resolved]
  - Upper gastrointestinal haemorrhage [Recovered/Resolved]

NARRATIVE: CASE EVENT DATE: 20191124
